FAERS Safety Report 12156127 (Version 2)
Quarter: 2022Q1

REPORT INFORMATION
  Report Type: Report from Study
  Country: CA (occurrence: CA)
  Receive Date: 20160307
  Receipt Date: 20220120
  Transmission Date: 20220424
  Serious: Yes (Other)
  Sender: FDA-Public Use
  Company Number: CA-JNJFOC-20160303794

PATIENT
  Age: 35 Year
  Sex: Female
  Weight: 63.560 kg

DRUGS (1)
  1. REMICADE [Suspect]
     Active Substance: INFLIXIMAB
     Indication: Psoriatic arthropathy
     Dosage: DOSE RECEIVED ON 29/FEB/2016
     Route: 042
     Dates: start: 20140812, end: 20160510

REACTIONS (6)
  - Chondrosarcoma [Unknown]
  - Infusion related reaction [Unknown]
  - Chest discomfort [Unknown]
  - Dyspnoea [Unknown]
  - Off label use [Unknown]
  - Product use in unapproved indication [Unknown]

NARRATIVE: CASE EVENT DATE: 20140812
